FAERS Safety Report 14782307 (Version 1)
Quarter: 2018Q2

REPORT INFORMATION
  Report Type: Report from Study
  Country: FR (occurrence: FR)
  Receive Date: 20180420
  Receipt Date: 20180420
  Transmission Date: 20180711
  Serious: Yes (Other)
  Sender: FDA-Public Use
  Company Number: FR-MERCK KGAA-2046116

PATIENT
  Age: 51 Year
  Sex: Female

DRUGS (2)
  1. NOVOTHYROX [Suspect]
     Active Substance: LEVOTHYROXINE SODIUM
     Dates: start: 201704
  2. NOVOTHYROX [Suspect]
     Active Substance: LEVOTHYROXINE SODIUM
     Indication: POST PROCEDURAL HYPOTHYROIDISM
     Dates: start: 201704

REACTIONS (22)
  - Amnesia [None]
  - Arthralgia [Recovering/Resolving]
  - Hypokinesia [Not Recovered/Not Resolved]
  - Thyroglobulin decreased [None]
  - Blood thyroid stimulating hormone decreased [None]
  - Thyroxine free increased [None]
  - Fatigue [None]
  - Asthenia [Not Recovered/Not Resolved]
  - Mood altered [Not Recovered/Not Resolved]
  - Malaise [None]
  - Pain [Not Recovered/Not Resolved]
  - Somnolence [None]
  - Muscle spasms [None]
  - Back pain [Not Recovered/Not Resolved]
  - Urinary tract infection [None]
  - Stress [None]
  - Somnolence [Not Recovered/Not Resolved]
  - Myalgia [Recovering/Resolving]
  - Loss of personal independence in daily activities [None]
  - Musculoskeletal stiffness [Not Recovered/Not Resolved]
  - Disturbance in attention [Not Recovered/Not Resolved]
  - Hot flush [None]

NARRATIVE: CASE EVENT DATE: 201705
